FAERS Safety Report 11075476 (Version 1)
Quarter: 2015Q2

REPORT INFORMATION
  Report Type: Spontaneous
  Country: CA (occurrence: CA)
  Receive Date: 20150429
  Receipt Date: 20150429
  Transmission Date: 20150821
  Serious: Yes (Other)
  Sender: FDA-Public Use
  Company Number: CA-ASTRAZENECA-2015SE37450

PATIENT
  Age: 64 Year
  Sex: Female
  Weight: 113 kg

DRUGS (6)
  1. PURE NORTH S^NERGY SUPPLEMENTS [Concomitant]
  2. MAGNESIUM [Concomitant]
     Active Substance: MAGNESIUM
  3. CRESTOR [Suspect]
     Active Substance: ROSUVASTATIN CALCIUM
     Indication: HIGH DENSITY LIPOPROTEIN INCREASED
     Route: 048
  4. LIPITOR [Suspect]
     Active Substance: ATORVASTATIN CALCIUM
     Indication: PRODUCT USED FOR UNKNOWN INDICATION
     Route: 048
  5. CRESTOR [Suspect]
     Active Substance: ROSUVASTATIN CALCIUM
     Indication: LOW DENSITY LIPOPROTEIN DECREASED
     Route: 048
  6. PROBIOTIC [Concomitant]
     Active Substance: PROBIOTICS NOS

REACTIONS (12)
  - Sleep disorder [Unknown]
  - Non-alcoholic steatohepatitis [Unknown]
  - Rhabdomyolysis [Unknown]
  - Chromaturia [Unknown]
  - Mood swings [Unknown]
  - Amnesia [Unknown]
  - Fatigue [Unknown]
  - Hepatic cirrhosis [Unknown]
  - Irritability [Unknown]
  - Verbal abuse [Unknown]
  - Myalgia [Unknown]
  - Liver disorder [Unknown]
